FAERS Safety Report 26043306 (Version 1)
Quarter: 2025Q4

REPORT INFORMATION
  Report Type: Spontaneous
  Country: CN (occurrence: CN)
  Receive Date: 20251113
  Receipt Date: 20251113
  Transmission Date: 20260118
  Serious: Yes (Other)
  Sender: IDORSIA PHARMACEUTICALS
  Company Number: CN-HAINAN SIMCERE CO., LTD.-2025XSYY4561

PATIENT
  Age: 42 Year
  Sex: Female
  Weight: 58 kg

DRUGS (1)
  1. QUVIVIQ [Suspect]
     Active Substance: DARIDOREXANT
     Indication: Insomnia
     Dosage: 1 DOSAGE FORM, QN
     Route: 048
     Dates: start: 2025, end: 2025

REACTIONS (2)
  - Hemiparesis [Recovered/Resolved]
  - Tremor [Recovered/Resolved]

NARRATIVE: CASE EVENT DATE: 20250101
